FAERS Safety Report 6785722-X (Version None)
Quarter: 2010Q2

REPORT INFORMATION
  Report Type: 
  Country: None (occurrence: None)
  Receive Date: 20100623
  Receipt Date: 20100610
  Transmission Date: 20101027
  Serious: Yes (Other)
  Sender: FDA-Public Use
  Company Number: PHHY2010JP34626

PATIENT
  Sex: Female

DRUGS (7)
  1. MIKELAN LA 2% (NVO) [Suspect]
     Indication: GLAUCOMA
     Dosage: 1 GTT, QD
     Route: 047
     Dates: start: 20080819
  2. DIAMOX SRC [Concomitant]
     Dosage: UNK
     Dates: start: 20081111, end: 20100119
  3. ASPARA K [Concomitant]
     Dosage: UNK
     Dates: start: 20081111, end: 20090119
  4. AZOPT [Concomitant]
     Dosage: UNK
     Dates: start: 20081210
  5. LATANOPROST [Concomitant]
  6. LUMIGAN [Concomitant]
     Dosage: UNK
     Dates: start: 20091209
  7. ECOLICIN [Concomitant]
     Dosage: UNK

REACTIONS (3)
  - GLAUCOMA SURGERY [None]
  - INTRAOCULAR PRESSURE INCREASED [None]
  - TRABECULECTOMY [None]
